FAERS Safety Report 5377488-5 (Version None)
Quarter: 2007Q3

REPORT INFORMATION
  Report Type: 
  Country: None (occurrence: None)
  Receive Date: 20070703
  Receipt Date: 20070621
  Transmission Date: 20080115
  Serious: Yes (Hospitalization)
  Sender: FDA-Public Use
  Company Number: FR-ROCHE-503937

PATIENT
  Age: 82 Year
  Sex: Female
  Weight: 57 kg

DRUGS (9)
  1. ROCEPHIN [Suspect]
     Indication: DRUG USE FOR UNKNOWN INDICATION
     Route: 065
     Dates: start: 20070504, end: 20070504
  2. IMOVANE [Concomitant]
     Route: 048
  3. POTASSIUM CHLORIDE [Concomitant]
     Route: 048
  4. SPECIAFOLDINE [Concomitant]
  5. DOLIPRANE [Concomitant]
     Route: 048
  6. AVLOCARDYL [Concomitant]
     Route: 048
  7. SERC [Concomitant]
  8. LEVOTHYROXINE SODIUM [Concomitant]
  9. OMEPRAZOLE [Concomitant]

REACTIONS (1)
  - HENOCH-SCHONLEIN PURPURA [None]
